FAERS Safety Report 8462418-X (Version None)
Quarter: 2012Q2

REPORT INFORMATION
  Report Type: 
  Country: None (occurrence: None)
  Receive Date: 20120625
  Receipt Date: 20120611
  Transmission Date: 20120825
  Serious: Yes (Other)
  Sender: FDA-Public Use
  Company Number: JP-MYLANLABS-2012S1011965

PATIENT
  Age: 72 Year
  Sex: Male

DRUGS (4)
  1. FLUOROURACIL [Suspect]
     Indication: METASTASES TO LIVER
     Route: 065
  2. BEVACIZUMAB [Suspect]
     Indication: METASTASES TO LIVER
     Route: 065
  3. LEUCOVORIN CALCIUM [Suspect]
     Indication: METASTASES TO LIVER
     Route: 065
  4. OXALIPLATIN [Suspect]
     Indication: METASTASES TO LIVER
     Route: 065

REACTIONS (2)
  - PSYCHIATRIC SYMPTOM [None]
  - LEUKOENCEPHALOPATHY [None]
